FAERS Safety Report 19367555 (Version 1)
Quarter: 2021Q2

REPORT INFORMATION
  Report Type: Spontaneous
  Country: US (occurrence: US)
  Receive Date: 20210602
  Receipt Date: 20210602
  Transmission Date: 20210717
  Serious: No
  Sender: FDA-Public Use
  Company Number: US-ROCHE-2776936

PATIENT
  Sex: Male
  Weight: 17.2 kg

DRUGS (1)
  1. EVRYSDI [Suspect]
     Active Substance: RISDIPLAM
     Indication: SPINAL MUSCULAR ATROPHY
     Dosage: 11 REFILLS
     Route: 048

REACTIONS (2)
  - Intentional product misuse [Unknown]
  - Stubbornness [Unknown]
